FAERS Safety Report 8569863 (Version 2)
Quarter: 2012Q4

REPORT INFORMATION
  Report Type: 
  Country: US (occurrence: US)
  Receive Date: 20120518
  Receipt Date: 20120927
  Transmission Date: 20130627
  Serious: No
  Sender: FDA-Public Use
  Company Number: US-ASTRAZENECA-2012SE29380

PATIENT
  Age: 56 Year
  Sex: Male

DRUGS (9)
  1. SYMBICORT PMDI [Suspect]
     Dosage: 160/4.5MCG, TWO PUFF INHALATION TWO TIMES DAILY
     Route: 055
     Dates: start: 20120221
  2. SEROQUEL [Suspect]
     Route: 048
     Dates: start: 20111206
  3. LAMICTAL [Concomitant]
     Route: 048
     Dates: start: 20120405
  4. VISTARIL [Concomitant]
     Indication: ANXIETY
     Dosage: 50 MG 1 CAPSULE 3 TIMES DAILY AS NEEDED
     Route: 048
     Dates: start: 20120405
  5. ATIVAN [Concomitant]
     Route: 048
     Dates: start: 20111206
  6. COREG [Concomitant]
     Route: 048
     Dates: start: 20120201
  7. VIAGRA [Concomitant]
     Indication: SEXUAL DYSFUNCTION
     Dosage: 100 MG 1 TIME DAILY AS NEEDED FOR SEXUAL ACTIVITY
     Route: 048
     Dates: start: 20120201
  8. PROVENTIL VENTOLIN [Concomitant]
     Indication: DYSPNOEA
     Dosage: 2.5 MG/3 ML TAKE 3 ML EVERY FOUR HOURS
     Route: 055
     Dates: start: 20110427
  9. PROVENTIL VENTOLIN [Concomitant]
     Indication: DYSPNOEA
     Dosage: 90 MCG EVERY 6 HOURS AS NEEEDED
     Route: 055

REACTIONS (5)
  - Bipolar disorder [Unknown]
  - Schizophrenia [Unknown]
  - Chronic obstructive pulmonary disease [Unknown]
  - Emphysema [Unknown]
  - Anxiety [Unknown]
